FAERS Safety Report 9463820 (Version 3)
Quarter: 2013Q4

REPORT INFORMATION
  Report Type: Report from Study
  Country: GB (occurrence: GB)
  Receive Date: 20130819
  Receipt Date: 20131220
  Transmission Date: 20140711
  Serious: Yes (Hospitalization, Other)
  Sender: FDA-Public Use
  Company Number: GB-JNJFOC-20130801707

PATIENT
  Age: 66 Year
  Sex: Male
  Weight: 117 kg

DRUGS (17)
  1. CANAGLIFLOZIN [Suspect]
     Route: 048
  2. CANAGLIFLOZIN [Suspect]
     Indication: TYPE 2 DIABETES MELLITUS
     Route: 048
     Dates: start: 20100809
  3. BISOPROLOL [Concomitant]
     Indication: ATRIAL FIBRILLATION
     Route: 048
  4. BISOPROLOL [Concomitant]
     Indication: ATRIAL FIBRILLATION
     Route: 048
  5. ASPIRIN [Concomitant]
     Route: 048
  6. BUMETANIDE [Concomitant]
     Route: 048
  7. CLONIDINE [Concomitant]
     Route: 048
  8. LANSOPRAZOLE [Concomitant]
     Route: 048
  9. LANTUS [Concomitant]
     Indication: TYPE 2 DIABETES MELLITUS
     Route: 058
  10. MEBEVERINE [Concomitant]
     Route: 048
  11. METFORMIN [Concomitant]
     Route: 048
  12. NICORANDIL [Concomitant]
     Route: 048
  13. QUININE SULFATE [Concomitant]
     Dosage: AT NIGHT TIME
     Route: 048
  14. ROSUVASTATIN [Concomitant]
     Route: 048
  15. SITAGLIPTIN [Concomitant]
     Dosage: AT NIGHT TIME
     Route: 048
  16. VALSARTAN [Concomitant]
     Dosage: AT NIGHT
     Route: 048
  17. PARACETAMOL [Concomitant]
     Route: 048

REACTIONS (1)
  - Atrial fibrillation [Recovering/Resolving]
